FAERS Safety Report 15223447 (Version 1)
Quarter: 2018Q3

REPORT INFORMATION
  Report Type: Spontaneous
  Country: US (occurrence: US)
  Receive Date: 20180705
  Receipt Date: 20180705
  Transmission Date: 20181010
  Serious: Yes (Death, Hospitalization)
  Sender: FDA-Public Use
  Company Number: None

PATIENT
  Age: 81 Year
  Sex: Male
  Weight: 58.97 kg

DRUGS (1)
  1. AMIODARONE HCL 200MG TAB?THEN 100MG [Suspect]
     Active Substance: AMIODARONE HYDROCHLORIDE

REACTIONS (5)
  - Contusion [None]
  - Fatigue [None]
  - Decreased appetite [None]
  - Thyroid disorder [None]
  - Constipation [None]

NARRATIVE: CASE EVENT DATE: 20180522
